FAERS Safety Report 17242435 (Version 2)
Quarter: 2020Q2

REPORT INFORMATION
  Report Type: Spontaneous
  Country: US (occurrence: US)
  Receive Date: 20200107
  Receipt Date: 20200407
  Transmission Date: 20200713
  Serious: Yes (Hospitalization)
  Sender: FDA-Public Use
  Company Number: US-AMNEAL PHARMACEUTICALS-2019-AMRX-02084

PATIENT
  Age: 6 Year
  Sex: Female
  Weight: 12 kg

DRUGS (8)
  1. CBD OIL [Concomitant]
     Active Substance: CANNABIDIOL\HERBALS
     Indication: PRODUCT USED FOR UNKNOWN INDICATION
     Dosage: UNK, 2 /DAY
     Route: 065
  2. VIGABATRIN. [Suspect]
     Active Substance: VIGABATRIN
     Indication: EPILEPSY
     Dosage: UNK, 750 MG IN AM (DOSE 15ML)) AND 1000 MG IN EVENING (2 PACK AT 20ML OF WATER AT NIGHT)
     Route: 048
     Dates: start: 201904
  3. TOPAMAX [Concomitant]
     Active Substance: TOPIRAMATE
     Indication: PRODUCT USED FOR UNKNOWN INDICATION
     Dosage: UNK, 62MG AT NIGHT, 50 MG IN THE MORNING
     Route: 065
  4. DESMOPRESSIN [Concomitant]
     Active Substance: DESMOPRESSIN
     Indication: PRODUCT USED FOR UNKNOWN INDICATION
     Dosage: 3.5 DOSAGE UNITS, EVENING
     Route: 065
  5. HYDROCORTISONE. [Concomitant]
     Active Substance: HYDROCORTISONE
     Indication: PRODUCT USED FOR UNKNOWN INDICATION
     Dosage: 2.5 MILLIGRAM, 3 /DAY
     Route: 065
  6. KLONOPIN [Concomitant]
     Active Substance: CLONAZEPAM
     Indication: SEIZURE
     Dosage: 0.25 MILLIGRAM
     Route: 065
  7. VIGABATRIN. [Suspect]
     Active Substance: VIGABATRIN
     Indication: CONGENITAL CENTRAL NERVOUS SYSTEM ANOMALY
     Dosage: 1000 MILLIGRAM, BID
     Route: 048
  8. VIGABATRIN. [Suspect]
     Active Substance: VIGABATRIN
     Indication: INFANTILE SPASMS
     Dosage: 1000 MILLIGRAM, BID
     Route: 048
     Dates: start: 2019

REACTIONS (2)
  - Pneumonia [Unknown]
  - Respiratory syncytial virus infection [Unknown]

NARRATIVE: CASE EVENT DATE: 20190922
